FAERS Safety Report 5026112-X (Version None)
Quarter: 2006Q2

REPORT INFORMATION
  Report Type: 
  Country: None (occurrence: None)
  Receive Date: 20060612
  Receipt Date: 20060612
  Transmission Date: 20061013
  Serious: Yes (Other)
  Sender: FDA-Public Use
  Company Number: None

PATIENT
  Age: 38 Year
  Sex: Female
  Weight: 81.6475 kg

DRUGS (2)
  1. CYMBALTA [Suspect]
     Indication: DEPRESSION
     Dosage: 60 MG  DAILY ORAL
     Route: 048
     Dates: start: 20051027, end: 20051226
  2. CYMBALTA [Suspect]
     Indication: NEURALGIA
     Dosage: 60 MG  DAILY ORAL
     Route: 048
     Dates: start: 20051027, end: 20051226

REACTIONS (3)
  - METRORRHAGIA [None]
  - UTERINE HAEMORRHAGE [None]
  - VAGINAL HAEMORRHAGE [None]
